FAERS Safety Report 5710545-X (Version None)
Quarter: 2008Q2

REPORT INFORMATION
  Report Type: 
  Country: None (occurrence: None)
  Receive Date: 20080415
  Receipt Date: 20080401
  Transmission Date: 20081010
  Serious: Yes (Hospitalization, Other)
  Sender: FDA-Public Use
  Company Number: 237973K07USA

PATIENT
  Age: 60 Year
  Sex: Female

DRUGS (5)
  1. REBIF [Suspect]
     Indication: MULTIPLE SCLEROSIS
     Dosage: 44 MCG, 3 IN 1 WEEKS, SUBCUTANEOUS
     Route: 058
     Dates: start: 20060314, end: 20080128
  2. NITROFURANTOIN [Suspect]
     Indication: PROPHYLAXIS URINARY TRACT INFECTION
     Dates: start: 20070101, end: 20080201
  3. ENABLEX [Suspect]
     Indication: BLADDER DISORDER
     Dates: start: 20070101, end: 20080201
  4. BACLOFEN [Suspect]
     Indication: MUSCLE SPASMS
  5. GABAPENTIN [Suspect]
     Indication: NEURALGIA

REACTIONS (6)
  - AUTOIMMUNE HEPATITIS [None]
  - BLADDER DISORDER [None]
  - MUSCLE SPASMS [None]
  - NEURALGIA [None]
  - OEDEMA PERIPHERAL [None]
  - SWELLING FACE [None]
